FAERS Safety Report 4781891-1 (Version None)
Quarter: 2005Q3

REPORT INFORMATION
  Report Type: 
  Country: None (occurrence: None)
  Receive Date: 20050927
  Receipt Date: 20050914
  Transmission Date: 20060218
  Serious: Yes (Disabling, Other)
  Sender: FDA-Public Use
  Company Number: 2005087412

PATIENT
  Age: 53 Year
  Sex: Male
  Weight: 88.4514 kg

DRUGS (7)
  1. CELEBREX [Suspect]
     Indication: MUSCULOSKELETAL DISORDER
     Dosage: 200 MG (200 MG, 1 IN 1 D), ORAL
     Route: 048
     Dates: end: 20040101
  2. PRILOSEC [Concomitant]
  3. CLARINEX [Concomitant]
  4. FLONASE [Concomitant]
  5. TOPROL (METOPROLOL) [Concomitant]
  6. DYNACIN (MINOCYCLINE HYDROCHLORIDE) [Concomitant]
  7. TOPROL-XL [Concomitant]

REACTIONS (2)
  - CEREBRAL ARTERY THROMBOSIS [None]
  - CEREBROVASCULAR ACCIDENT [None]
